FAERS Safety Report 8361297-9 (Version None)
Quarter: 2012Q2

REPORT INFORMATION
  Report Type: 
  Country: None (occurrence: None)
  Receive Date: 20120515
  Receipt Date: 20120509
  Transmission Date: 20120825
  Serious: Yes (Other)
  Sender: FDA-Public Use
  Company Number: US-ROCHE-783690

PATIENT
  Sex: Male
  Weight: 61.29 kg

DRUGS (2)
  1. ACCUTANE [Suspect]
     Indication: ACNE
     Route: 065
     Dates: start: 19940901, end: 19950101
  2. ACCUTANE [Suspect]
     Route: 065
     Dates: start: 19950825, end: 19960101

REACTIONS (6)
  - INFLAMMATORY BOWEL DISEASE [None]
  - ANORECTAL STENOSIS [None]
  - IRRITABLE BOWEL SYNDROME [None]
  - DEPRESSION [None]
  - COLITIS ULCERATIVE [None]
  - STRESS [None]
